FAERS Safety Report 4852132-1 (Version None)
Quarter: 2005Q4

REPORT INFORMATION
  Report Type: 
  Country: None (occurrence: None)
  Receive Date: 20051209
  Receipt Date: 20051129
  Transmission Date: 20060501
  Serious: Yes (Death, Other)
  Sender: FDA-Public Use
  Company Number: 2005157505

PATIENT
  Sex: Male

DRUGS (5)
  1. VFEND [Suspect]
     Indication: OESOPHAGEAL CANDIDIASIS
  2. RIFAMPICIN [Concomitant]
  3. ISONIAZID [Concomitant]
  4. MYCOBUTOL (ETHAMBUTOL) [Concomitant]
  5. DRUGS FOR TREATMENT OF TUBERCULOSIS (DRUGS FOR TREATMENT OF TUBERCOLOS [Concomitant]

REACTIONS (1)
  - HEPATITIS ACUTE [None]
